FAERS Safety Report 17931042 (Version 1)
Quarter: 2020Q2

REPORT INFORMATION
  Report Type: Spontaneous
  Country: DE (occurrence: DE)
  Receive Date: 20200623
  Receipt Date: 20200623
  Transmission Date: 20200714
  Serious: Yes (Hospitalization)
  Sender: FDA-Public Use
  Company Number: NVSC2020DE173326

PATIENT
  Sex: Male
  Weight: 80 kg

DRUGS (4)
  1. PEGFILGRASTIM [Suspect]
     Active Substance: PEGFILGRASTIM
     Dosage: 6 MG, QD (STRENGTH: 6 MG (2ND CYCLE)   )
     Route: 058
     Dates: start: 20200229
  2. PEGFILGRASTIM [Suspect]
     Active Substance: PEGFILGRASTIM
     Indication: PRODUCT USED FOR UNKNOWN INDICATION
     Dosage: 6 MG, QD (STRENGTH: 6 MG (1ST CYCLE)  )
     Route: 058
     Dates: start: 20200129
  3. PEGFILGRASTIM [Suspect]
     Active Substance: PEGFILGRASTIM
     Dosage: 6 MG, QD (STRENGTH: 6 MG (3RD CYCLE))
     Route: 058
     Dates: start: 20200311
  4. PEGFILGRASTIM [Suspect]
     Active Substance: PEGFILGRASTIM
     Dosage: 6 MG, QD (STRENGTH: 6 MG (4TH CYCLE)   )
     Route: 058
     Dates: start: 20200409

REACTIONS (1)
  - Pneumonia [Recovered/Resolved]

NARRATIVE: CASE EVENT DATE: 20200323
